FAERS Safety Report 6929871-1 (Version None)
Quarter: 2010Q3

REPORT INFORMATION
  Report Type: 
  Country: None (occurrence: None)
  Receive Date: 20100815
  Receipt Date: 20100815
  Transmission Date: 20110219
  Serious: No
  Sender: FDA-Public Use
  Company Number: None

PATIENT
  Sex: Female
  Weight: 27.2158 kg

DRUGS (1)
  1. EPIPEN [Suspect]

REACTIONS (3)
  - MEDICATION ERROR [None]
  - PRODUCT LABEL ISSUE [None]
  - PRODUCT SUBSTITUTION ISSUE [None]
